FAERS Safety Report 7234019-2 (Version None)
Quarter: 2010Q4

REPORT INFORMATION
  Report Type: 
  Country: None (occurrence: None)
  Receive Date: 20101130
  Receipt Date: 20100805
  Transmission Date: 20110411
  Serious: Yes (Hospitalization, Other)
  Sender: FDA-Public Use
  Company Number: 2005-124959-NL

PATIENT
  Age: 26 Year
  Sex: Female
  Weight: 55.8 kg

DRUGS (4)
  1. NUVARING [Suspect]
     Indication: CONTRACEPTION
     Dosage: QM
     Dates: start: 20031101, end: 20041101
  2. NUVARING [Suspect]
     Indication: HORMONE THERAPY
     Dosage: QM
     Dates: start: 20031101, end: 20041101
  3. LEXAPRO [Concomitant]
  4. NORTRIPTYLINE [Concomitant]

REACTIONS (10)
  - ANXIETY [None]
  - CERVICAL DYSPLASIA [None]
  - CERVICITIS [None]
  - CONTUSION [None]
  - DEPRESSION [None]
  - FATIGUE [None]
  - FUNGAL INFECTION [None]
  - HEADACHE [None]
  - PULMONARY EMBOLISM [None]
  - WITHDRAWAL BLEED [None]
